FAERS Safety Report 8943763 (Version 1)
Quarter: 2012Q4

REPORT INFORMATION
  Report Type: 
  Country: IT (occurrence: IT)
  Receive Date: 20121204
  Receipt Date: 20121204
  Transmission Date: 20130627
  Serious: Yes (Hospitalization, Other)
  Sender: FDA-Public Use
  Company Number: PHHY2012IT110014

PATIENT
  Sex: Male

DRUGS (4)
  1. TOLEP [Suspect]
     Indication: EPILEPSY
     Dosage: 300 mg, Daily
     Route: 048
     Dates: start: 20120716, end: 20120716
  2. GARDENALE [Suspect]
     Dosage: 50 mg, Daily
     Route: 048
     Dates: start: 20120716, end: 20120716
  3. ZOLOFT [Suspect]
     Dosage: 50 mg, Daily
     Route: 048
     Dates: start: 20120716, end: 20120716
  4. SEROQUEL [Suspect]
     Dosage: 25 mg, Daily
     Route: 048
     Dates: start: 20120716, end: 20120716

REACTIONS (4)
  - Sopor [Recovered/Resolved]
  - Blood pressure decreased [Recovered/Resolved]
  - Stupor [Recovered/Resolved]
  - Drug administration error [Unknown]
